FAERS Safety Report 17561337 (Version 9)
Quarter: 2020Q3

REPORT INFORMATION
  Report Type: Spontaneous
  Country: US (occurrence: US)
  Receive Date: 20200319
  Receipt Date: 20200725
  Transmission Date: 20201102
  Serious: Yes (Death, Hospitalization, Congenital Anomaly, Other)
  Sender: FDA-Public Use
  Company Number: NVSC2020US074797

PATIENT
  Sex: Female

DRUGS (1)
  1. ZOFRAN [Suspect]
     Active Substance: ONDANSETRON HYDROCHLORIDE
     Indication: FOETAL EXPOSURE DURING PREGNANCY
     Dosage: MOTHER DOSE: 08 MG, TID
     Route: 064

REACTIONS (105)
  - Craniosynostosis [Unknown]
  - Synostosis [Unknown]
  - Pulmonary congestion [Unknown]
  - Tachycardia [Unknown]
  - Malnutrition [Unknown]
  - Cardiomegaly [Unknown]
  - Ventricular extrasystoles [Unknown]
  - Agitation [Unknown]
  - Gastric ulcer [Unknown]
  - Hypoventilation [Unknown]
  - Cerebral infarction [Unknown]
  - Apnoea [Unknown]
  - Upper respiratory tract infection [Unknown]
  - Tachypnoea [Unknown]
  - Left ventricular dilatation [Unknown]
  - Candida infection [Unknown]
  - Brain natriuretic peptide increased [Unknown]
  - Decreased appetite [Unknown]
  - Hypotension [Unknown]
  - Myopia [Unknown]
  - Atrial septal defect [Not Recovered/Not Resolved]
  - Plagiocephaly [Unknown]
  - Congenital tricuspid valve incompetence [Not Recovered/Not Resolved]
  - Gross motor delay [Unknown]
  - Hyperkalaemia [Unknown]
  - Deep vein thrombosis [Unknown]
  - Anhedonia [Unknown]
  - Mitral valve prolapse [Unknown]
  - Dyspnoea [Unknown]
  - Anaemia [Unknown]
  - Nasopharyngitis [Unknown]
  - Eczema [Unknown]
  - Urinary tract infection [Unknown]
  - Marfan^s syndrome [Unknown]
  - Congenital mitral valve incompetence [Not Recovered/Not Resolved]
  - Dysmorphism [Unknown]
  - Cardiac failure [Unknown]
  - Pneumonia [Unknown]
  - Ileus [Unknown]
  - Parainfluenzae virus infection [Unknown]
  - Bacteraemia [Unknown]
  - Foetal exposure during pregnancy [Unknown]
  - Grunting [Unknown]
  - Weight gain poor [Unknown]
  - Dilatation atrial [Unknown]
  - Hyperphosphataemia [Unknown]
  - Asthma [Unknown]
  - Death [Fatal]
  - Cardiac failure chronic [Unknown]
  - Dependence on respirator [Unknown]
  - Cerebral atrophy [Unknown]
  - Pleural effusion [Unknown]
  - Cardiac failure congestive [Recovering/Resolving]
  - Cardiac murmur [Unknown]
  - Leukocytosis [Unknown]
  - Wheezing [Unknown]
  - Left ventricular hypertrophy [Unknown]
  - Selective eating disorder [Unknown]
  - Pyrexia [Unknown]
  - Metabolic acidosis [Unknown]
  - Ejection fraction decreased [Unknown]
  - C-reactive protein increased [Unknown]
  - Heart disease congenital [Unknown]
  - Left-to-right cardiac shunt [Unknown]
  - Acute respiratory failure [Unknown]
  - Deformity [Unknown]
  - Pain [Unknown]
  - Emotional distress [Unknown]
  - Cough [Unknown]
  - Fatigue [Unknown]
  - Adenovirus infection [Unknown]
  - Constipation [Unknown]
  - Illness [Unknown]
  - Electrolyte imbalance [Unknown]
  - Cystic lung disease [Unknown]
  - Hypercapnia [Unknown]
  - Respiratory distress [Unknown]
  - Device related infection [Unknown]
  - Hypokalaemia [Unknown]
  - Atelectasis [Unknown]
  - Hepatosplenomegaly [Unknown]
  - Developmental delay [Unknown]
  - Hypermagnesaemia [Unknown]
  - Hypoglycaemia [Unknown]
  - Heterophoria [Unknown]
  - Multiple congenital abnormalities [Unknown]
  - Congenital bronchomalacia [Unknown]
  - Endocarditis [Unknown]
  - Hypoxia [Unknown]
  - Staphylococcal sepsis [Unknown]
  - Pneumothorax [Unknown]
  - Cellulitis [Unknown]
  - Injury [Not Recovered/Not Resolved]
  - Torticollis [Unknown]
  - Hyperhidrosis [Unknown]
  - Scoliosis [Unknown]
  - Speech disorder [Unknown]
  - Eyelid ptosis [Unknown]
  - Hypertension [Unknown]
  - Blister [Unknown]
  - Sleep apnoea syndrome [Unknown]
  - Diarrhoea [Unknown]
  - Dermatitis diaper [Unknown]
  - Left ventricular dysfunction [Unknown]
  - Abdominal distension [Unknown]
